FAERS Safety Report 9521500 (Version 1)
Quarter: 2013Q3

REPORT INFORMATION
  Report Type: Other
  Country: GB (occurrence: GB)
  Receive Date: 20130913
  Receipt Date: 20130913
  Transmission Date: 20140515
  Serious: Yes (Disabling)
  Sender: FDA-Public Use
  Company Number: GB-SUN PHARMACEUTICAL INDUSTRIES LTD-2013SUN04674

PATIENT
  Age: 73 Year
  Sex: Female
  Weight: 102 kg

DRUGS (6)
  1. LETROZOLE [Suspect]
     Indication: BREAST CANCER
     Dosage: 2.5 MG, UNK
     Route: 048
     Dates: start: 201202
  2. ANTIPSYCHOTICS [Concomitant]
     Indication: BIPOLAR DISORDER
     Dosage: 200 MG, UNK
     Route: 048
     Dates: start: 1970
  3. ASPIRIN [Concomitant]
     Dosage: 150 MG, UNK
     Route: 048
  4. FUROSEMIDE [Concomitant]
     Dosage: 20 MG, UNK
     Route: 048
  5. THYROXINE [Concomitant]
     Dosage: 50 MG, UNK
     Route: 048
  6. VALPROATE [Concomitant]
     Indication: BIPOLAR DISORDER
     Dosage: 250 MG, UNK
     Route: 048
     Dates: start: 2007

REACTIONS (1)
  - Confusional state [Recovered/Resolved]
